FAERS Safety Report 8275794-8 (Version None)
Quarter: 2012Q2

REPORT INFORMATION
  Report Type: 
  Country: None (occurrence: None)
  Receive Date: 20120410
  Receipt Date: 20120410
  Transmission Date: 20120825
  Serious: Yes (Life-Threatening, Hospitalization)
  Sender: FDA-Public Use
  Company Number: None

PATIENT
  Age: 66 Year
  Sex: Male
  Weight: 106.1 kg

DRUGS (1)
  1. WARFARIN SODIUM [Suspect]
     Indication: ATRIAL FIBRILLATION
     Dosage: 4 MG HS PO
     Route: 048
     Dates: start: 20070108

REACTIONS (5)
  - PALPITATIONS [None]
  - ISCHAEMIC CARDIOMYOPATHY [None]
  - INTERNATIONAL NORMALISED RATIO INCREASED [None]
  - ATRIAL FIBRILLATION [None]
  - TACHYCARDIA [None]
